FAERS Safety Report 8263234-4 (Version None)
Quarter: 2012Q1

REPORT INFORMATION
  Report Type: 
  Country: None (occurrence: None)
  Receive Date: 20120327
  Receipt Date: 20080822
  Transmission Date: 20120608
  Serious: Yes (Other)
  Sender: FDA-Public Use
  Company Number: PHEH2008US07479

PATIENT
  Age: 75 Year
  Sex: Female

DRUGS (2)
  1. TRANSFUSIONS (NO INGREDIENTS/SUBSTANCES) [Concomitant]
  2. GLEEVEC [Suspect]
     Indication: LYMPHOPROLIFERATIVE DISORDER
     Dosage: 400 MG, QD, ORAL
     Route: 048
     Dates: start: 20080601, end: 20080801

REACTIONS (1)
  - FATIGUE [None]
